FAERS Safety Report 6904311-7 (Version None)
Quarter: 2010Q3

REPORT INFORMATION
  Report Type: 
  Country: None (occurrence: None)
  Receive Date: 20100804
  Receipt Date: 20090421
  Transmission Date: 20110219
  Serious: No
  Sender: FDA-Public Use
  Company Number: US-PFIZER INC-2009176055

PATIENT
  Sex: Female
  Weight: 81.6 kg

DRUGS (1)
  1. LYRICA [Suspect]
     Indication: PAIN
     Dosage: 75 MG, 2X/DAY
     Dates: start: 20081101

REACTIONS (4)
  - JOINT SWELLING [None]
  - PAIN [None]
  - PRURITUS [None]
  - VISION BLURRED [None]
